FAERS Safety Report 9311713 (Version 3)
Quarter: 2013Q2

REPORT INFORMATION
  Report Type: Spontaneous
  Country: US (occurrence: US)
  Receive Date: 20130528
  Receipt Date: 20130621
  Transmission Date: 20140414
  Serious: No
  Sender: FDA-Public Use
  Company Number: US-009507513-1305USA011312

PATIENT
  Sex: 0

DRUGS (7)
  1. VARIVAX [Suspect]
     Indication: PROPHYLAXIS
     Route: 058
     Dates: start: 2013, end: 2013
  2. VARIVAX [Suspect]
     Route: 058
     Dates: start: 2013, end: 2013
  3. GARDASIL [Suspect]
     Indication: PROPHYLAXIS
     Dates: start: 2013, end: 2013
  4. M-M-R II [Suspect]
     Indication: PROPHYLAXIS
     Dates: start: 2013, end: 2013
  5. STERILE DILUENT [Suspect]
     Dosage: UNK
     Route: 058
     Dates: start: 2013
  6. INFANRIX [Suspect]
     Dosage: UNK
     Dates: start: 2013
  7. DIPHTHERIA TOXOID (+) PERTUSSIS VACCINE (UNSPECIFIED) (+) TETANUS TOXO [Suspect]
     Dosage: UNK
     Dates: start: 2013

REACTIONS (6)
  - Blister [Unknown]
  - Injection site warmth [Unknown]
  - Pyrexia [Unknown]
  - Injection site pruritus [Unknown]
  - Injection site erythema [Unknown]
  - Injection site pain [Unknown]
